FAERS Safety Report 10400392 (Version 1)
Quarter: 2014Q3

REPORT INFORMATION
  Report Type: Spontaneous
  Country: US (occurrence: US)
  Receive Date: 20140821
  Receipt Date: 20140821
  Transmission Date: 20150326
  Serious: No
  Sender: FDA-Public Use
  Company Number: US-ASTRAZENECA-2013SE79460

PATIENT
  Age: 53 Year
  Sex: Female

DRUGS (3)
  1. SYMBICORT [Suspect]
     Active Substance: BUDESONIDE\FORMOTEROL FUMARATE DIHYDRATE
     Dosage: 2 PUFFS DAILY
     Route: 055
  2. ALBUTERAL SULFATE [Concomitant]
  3. VENTOLIN ENHALER [Concomitant]
     Indication: ASTHMA

REACTIONS (3)
  - Asthma exercise induced [Unknown]
  - Asthma [Unknown]
  - Intentional product misuse [Unknown]
